FAERS Safety Report 25620767 (Version 2)
Quarter: 2025Q3

REPORT INFORMATION
  Report Type: Report from Study
  Country: US (occurrence: US)
  Receive Date: 20250730
  Receipt Date: 20250825
  Transmission Date: 20251021
  Serious: No
  Sender: SANDOZ
  Company Number: US-SANDOZ-SDZ2025US053736

PATIENT
  Age: 15 Year
  Sex: Male

DRUGS (2)
  1. OMNITROPE [Suspect]
     Active Substance: SOMATROPIN
     Indication: Short stature
     Dosage: 2.4 MG, QD (OMNITROPE 10 MG / 1.5 ML)
     Route: 058
     Dates: start: 20250724, end: 20250725
  2. OMNITROPE [Suspect]
     Active Substance: SOMATROPIN
     Indication: Short stature
     Dosage: 2.4 MG, QD (OMNITROPE 10 MG / 1.5 ML)
     Route: 058
     Dates: start: 20250724, end: 20250725

REACTIONS (6)
  - Nausea [Not Recovered/Not Resolved]
  - Pallor [Not Recovered/Not Resolved]
  - Injection site pain [Not Recovered/Not Resolved]
  - Injection site pain [Unknown]
  - Device difficult to use [Unknown]
  - Device defective [Unknown]

NARRATIVE: CASE EVENT DATE: 20250724
